FAERS Safety Report 9997647 (Version 2)
Quarter: 2014Q2

REPORT INFORMATION
  Report Type: Report from Study
  Country: DE (occurrence: DE)
  Receive Date: 20140311
  Receipt Date: 20140402
  Transmission Date: 20141212
  Serious: Yes (Hospitalization)
  Sender: FDA-Public Use
  Company Number: PHHY2014DE028724

PATIENT
  Sex: Female

DRUGS (9)
  1. AMN107 [Suspect]
     Indication: CHRONIC MYELOID LEUKAEMIA
     Dosage: 800 MG, PER DAY
     Route: 048
     Dates: start: 20120522, end: 20120525
  2. AMN107 [Suspect]
     Dosage: 600 MG, PER DAY
     Route: 048
     Dates: start: 20120526, end: 20120618
  3. AMN107 [Suspect]
     Dosage: 600 MG, PER DAY
     Route: 048
     Dates: start: 20120625
  4. BISOPROLOL [Concomitant]
     Indication: HYPERTENSION
     Dosage: 5 MG, PER DAY
  5. JODTHYROX [Concomitant]
     Indication: POST PROCEDURAL HYPOTHYROIDISM
     Dates: start: 2008
  6. VOTUM [Concomitant]
     Indication: HYPERTENSION
     Dosage: 10 MG, PER DAY
  7. ASS [Concomitant]
     Dosage: 100 MG, PER DAY
  8. ALLOPURINOL [Concomitant]
     Dosage: 300 MG, PER DAY
     Dates: start: 20120509, end: 20120724
  9. MARCUMAR [Concomitant]
     Dates: start: 201206

REACTIONS (2)
  - Temporal arteritis [Recovered/Resolved]
  - Headache [Recovered/Resolved]
